FAERS Safety Report 10050315 (Version 2)
Quarter: 2016Q1

REPORT INFORMATION
  Report Type: Spontaneous
  Country: SE (occurrence: SE)
  Receive Date: 20140401
  Receipt Date: 20160224
  Transmission Date: 20160525
  Serious: Yes (Disabling)
  Sender: FDA-Public Use
  Company Number: SE-ASTRAZENECA-2014SE20453

PATIENT
  Age: 82 Year
  Sex: Male

DRUGS (2)
  1. IMOVANE [Concomitant]
     Active Substance: ZOPICLONE
  2. BRILIQUE [Suspect]
     Active Substance: TICAGRELOR
     Indication: MYOCARDIAL INFARCTION
     Route: 048
     Dates: start: 20131217, end: 20150226

REACTIONS (5)
  - Arthralgia [Recovered/Resolved with Sequelae]
  - Feeling cold [Unknown]
  - Fall [Recovered/Resolved with Sequelae]
  - Loss of consciousness [Recovered/Resolved with Sequelae]
  - Pain [Recovered/Resolved with Sequelae]

NARRATIVE: CASE EVENT DATE: 20140215
